FAERS Safety Report 5896920-1 (Version None)
Quarter: 2008Q3

REPORT INFORMATION
  Report Type: 
  Country: None (occurrence: None)
  Receive Date: 20080923
  Receipt Date: 20080908
  Transmission Date: 20090109
  Serious: Yes (Death, Hospitalization)
  Sender: FDA-Public Use
  Company Number: KADN20080354

PATIENT
  Age: 35 Year
  Sex: Female

DRUGS (4)
  1. MORPHINE [Suspect]
     Dosage: ORAL
     Route: 048
     Dates: start: 20050101, end: 20050101
  2. INSULIN [Suspect]
     Dosage: ORAL
     Route: 048
     Dates: start: 20050101, end: 20050101
  3. CLONAZEPAM [Suspect]
     Dosage: ORAL
     Route: 048
     Dates: start: 20050101, end: 20050101
  4. ACETAMINOPHEN W/DIPHENYDRAMINE [Suspect]
     Dosage: ORAL
     Route: 048
     Dates: start: 20050101, end: 20050101

REACTIONS (12)
  - BLOOD CHLORIDE INCREASED [None]
  - BLOOD CREATININE INCREASED [None]
  - BLOOD GLUCOSE INCREASED [None]
  - BLOOD POTASSIUM INCREASED [None]
  - BLOOD SODIUM INCREASED [None]
  - BRAIN OEDEMA [None]
  - COMPLETED SUICIDE [None]
  - DRUG TOXICITY [None]
  - HEART RATE INCREASED [None]
  - HYPOTENSION [None]
  - RESPIRATORY FAILURE [None]
  - UNRESPONSIVE TO STIMULI [None]
